FAERS Safety Report 5192054-2 (Version None)
Quarter: 2006Q4

REPORT INFORMATION
  Report Type: 
  Country: None (occurrence: None)
  Receive Date: 20061220
  Receipt Date: 20061207
  Transmission Date: 20070319
  Serious: Yes (Death, Hospitalization)
  Sender: FDA-Public Use
  Company Number: 2006151172

PATIENT
  Age: 98 Year
  Sex: Female

DRUGS (11)
  1. ARTHROTEC [Suspect]
     Indication: BACK PAIN
     Dosage: 2 IN 1 D, ORAL
     Route: 048
     Dates: start: 20061013, end: 20061017
  2. VOLTAREN [Suspect]
     Indication: BACK PAIN
     Dosage: 1 IN 1 D, INTRAMUSCULAR
     Route: 030
     Dates: start: 20061009, end: 20061012
  3. THIOCOLCHICOSIDE (THIOCOLCHICOSIDE) [Concomitant]
  4. CLOPIDOGREL [Concomitant]
  5. NITROGLYCERIN [Concomitant]
  6. TRIMETAZIDINE DIHYDROCHLORIDE (TRIMETAZIDINE HYDROCHLORIDE) [Concomitant]
  7. REPAGLINIDE [Concomitant]
  8. NEBIVOLOL (NEBIVOLOL) [Concomitant]
  9. ISRADIPINE [Concomitant]
  10. ATORVASTATIN CALCIUM [Concomitant]
  11. ACETAMINOPHEN [Concomitant]

REACTIONS (11)
  - ABDOMINAL PAIN [None]
  - ANURIA [None]
  - DUODENAL ULCER PERFORATION [None]
  - HYPOTHERMIA [None]
  - METABOLIC ACIDOSIS [None]
  - PERITONEAL EFFUSION [None]
  - PERITONITIS [None]
  - PNEUMOPERITONEUM [None]
  - REFUSAL OF TREATMENT BY PATIENT [None]
  - RENAL FAILURE [None]
  - SHOCK [None]
